FAERS Safety Report 5773349-8 (Version None)
Quarter: 2008Q2

REPORT INFORMATION
  Report Type: 
  Country: None (occurrence: None)
  Receive Date: 20080616
  Receipt Date: 20080602
  Transmission Date: 20081010
  Serious: Yes (Other)
  Sender: FDA-Public Use
  Company Number: US-ELI_LILLY_AND_COMPANY-US200806000306

PATIENT
  Age: 73 Year
  Sex: Female

DRUGS (2)
  1. EVISTA [Suspect]
     Indication: OSTEOPOROSIS
     Dosage: 60 MG, UNK
  2. EVISTA [Suspect]
     Dosage: 60 MG, UNK

REACTIONS (6)
  - BENIGN OVARIAN TUMOUR [None]
  - FALL [None]
  - OSTEOPOROSIS [None]
  - SPINAL FRACTURE [None]
  - UTERINE LEIOMYOMA [None]
  - UTERINE PROLAPSE [None]
